FAERS Safety Report 17194928 (Version 1)
Quarter: 2019Q4

REPORT INFORMATION
  Report Type: Report from Study
  Country: US (occurrence: US)
  Receive Date: 20191224
  Receipt Date: 20191224
  Transmission Date: 20200122
  Serious: Yes (Other)
  Sender: FDA-Public Use
  Company Number: NVSC2019US073549

PATIENT
  Sex: Male

DRUGS (1)
  1. GILENYA [Suspect]
     Active Substance: FINGOLIMOD HYDROCHLORIDE
     Indication: MULTIPLE SCLEROSIS
     Dosage: UNK UNK, QD
     Route: 048

REACTIONS (8)
  - Urinary retention [Unknown]
  - Fatigue [Unknown]
  - Dementia [Unknown]
  - Muscular weakness [Unknown]
  - Pain [Unknown]
  - Optic atrophy [Unknown]
  - Sleep apnoea syndrome [Unknown]
  - Cognitive disorder [Unknown]
